FAERS Safety Report 7817889-6 (Version None)
Quarter: 2011Q4

REPORT INFORMATION
  Report Type: 
  Country: None (occurrence: None)
  Receive Date: 20111017
  Receipt Date: 20111006
  Transmission Date: 20120403
  Serious: Yes (Death)
  Sender: FDA-Public Use
  Company Number: US-AMGEN-USASP2010008145

PATIENT
  Age: 34 Year
  Sex: Female

DRUGS (3)
  1. NPLATE [Suspect]
     Indication: IDIOPATHIC THROMBOCYTOPENIC PURPURA
     Dosage: UNK
  2. IMMUNOGLOBULINS [Concomitant]
     Dosage: UNK
     Dates: start: 20040703
  3. CORTICOSTEROIDS [Concomitant]
     Dosage: UNK
     Dates: start: 20040703

REACTIONS (1)
  - SEPSIS [None]
